FAERS Safety Report 11975956 (Version 1)
Quarter: 2016Q1

REPORT INFORMATION
  Report Type: Spontaneous
  Country: US (occurrence: None)
  Receive Date: 20160128
  Receipt Date: 20160128
  Transmission Date: 20160526
  Serious: Yes (Death, Hospitalization)
  Sender: FDA-Public Use
  Company Number: None

PATIENT
  Age: 92 Year
  Sex: Female
  Weight: 64 kg

DRUGS (16)
  1. METOPROLOL (LOPRESSOR) [Concomitant]
  2. MULTIPLE VITAMINS-MINERALS (DAILY MULTIPLE VITAMINS/MINER) [Concomitant]
  3. COLCHICINE (COLCRYS) [Concomitant]
  4. ASPIRIN 81 MG [Suspect]
     Active Substance: ASPIRIN
     Indication: ATRIAL FIBRILLATION
     Route: 048
  5. LASIX [Concomitant]
     Active Substance: FUROSEMIDE
  6. OXYBUTYNIN (DITROPAN) [Concomitant]
  7. RIVAROXABAN 15 MG [Suspect]
     Active Substance: RIVAROXABAN
     Indication: ATRIAL FIBRILLATION
     Route: 048
  8. GLYBURIDE-METFORMIN (GLUCOVANCE) [Concomitant]
  9. LISINOPRIL (ZESTRIL) [Concomitant]
  10. SINGULAIR [Concomitant]
     Active Substance: MONTELUKAST SODIUM
  11. LUTEIN [Concomitant]
     Active Substance: LUTEIN
  12. OMEPRAZOLE (PRILOSEC) [Concomitant]
  13. FERROUS SULFATE (IRON) [Concomitant]
  14. CALCIUM CITRATE-VITAMIN D [Concomitant]
     Active Substance: CALCIUM CITRATE\VITAMIN D
  15. SIMVASTATIN (ZOCOR) [Concomitant]
  16. NAPROXEN SODIUM (ALEVE) [Concomitant]

REACTIONS (6)
  - Asthenia [None]
  - Lipase increased [None]
  - Gastrointestinal haemorrhage [None]
  - Blood lactic acid increased [None]
  - Anaemia [None]
  - Refusal of treatment by patient [None]

NARRATIVE: CASE EVENT DATE: 20140212
